FAERS Safety Report 9425311 (Version 2)
Quarter: 2013Q4

REPORT INFORMATION
  Report Type: Spontaneous
  Country: GB (occurrence: GB)
  Receive Date: 20130729
  Receipt Date: 20131108
  Transmission Date: 20140711
  Serious: Yes (Death, Congenital Anomaly, Other)
  Sender: FDA-Public Use
  Company Number: PHHY2013GB077622

PATIENT
  Sex: 0

DRUGS (2)
  1. GABAPENTIN [Suspect]
     Dosage: MATERNAL DOSE 200 MG, TID
     Route: 064
     Dates: start: 200905
  2. REBIF [Suspect]
     Dosage: MATERNAL DOSE 4 MCG, QW3
     Route: 064
     Dates: start: 201205, end: 201303

REACTIONS (3)
  - Abortion induced [Fatal]
  - Foetal cardiac disorder [Not Recovered/Not Resolved]
  - Ventricular septal defect [Not Recovered/Not Resolved]
